FAERS Safety Report 25781690 (Version 4)
Quarter: 2025Q4

REPORT INFORMATION
  Report Type: Report from Study
  Country: JP (occurrence: JP)
  Receive Date: 20250909
  Receipt Date: 20251005
  Transmission Date: 20260117
  Serious: No
  Sender: TAKEDA
  Company Number: JP-TAKEDA-2025TJP001640

PATIENT
  Age: 54 Year
  Sex: Female

DRUGS (1)
  1. LANADELUMAB [Suspect]
     Active Substance: LANADELUMAB
     Indication: Hereditary angioedema
     Dosage: 300 MILLIGRAM

REACTIONS (8)
  - Sinusitis [Recovered/Resolved]
  - Anxiety [Unknown]
  - Emotional distress [Unknown]
  - Stress [Unknown]
  - Fatigue [Unknown]
  - Product dose omission issue [Unknown]
  - Therapeutic response shortened [Unknown]
  - Wrong technique in product usage process [Unknown]

NARRATIVE: CASE EVENT DATE: 20240909
